FAERS Safety Report 9476915 (Version 1)
Quarter: 2013Q3

REPORT INFORMATION
  Report Type: Spontaneous
  Country: CH (occurrence: CH)
  Receive Date: 20130826
  Receipt Date: 20130826
  Transmission Date: 20140515
  Serious: Yes (Other)
  Sender: FDA-Public Use
  Company Number: CH-GLAXOSMITHKLINE-B0917639A

PATIENT
  Age: 31 Year
  Sex: Female

DRUGS (2)
  1. NEOTIGASON [Suspect]
     Indication: PSORIASIS
     Dosage: 10MG PER DAY
     Dates: start: 201301, end: 20130608
  2. FLUCTINE [Suspect]
     Indication: PRODUCT USED FOR UNKNOWN INDICATION
     Dosage: 20MG PER DAY

REACTIONS (1)
  - Exposure during pregnancy [Unknown]
